FAERS Safety Report 6193517-3 (Version None)
Quarter: 2009Q2

REPORT INFORMATION
  Report Type: 
  Country: None (occurrence: None)
  Receive Date: 20090514
  Receipt Date: 20090429
  Transmission Date: 20091009
  Serious: Yes (Other)
  Sender: FDA-Public Use
  Company Number: 2009SP001126

PATIENT
  Age: 83 Year
  Sex: Female
  Weight: 55 kg

DRUGS (24)
  1. ALVESCO [Suspect]
     Dosage: INHALATION
     Route: 055
     Dates: start: 20090312, end: 20090313
  2. AVAPRO [Concomitant]
  3. ASPIRIN [Concomitant]
  4. DUCENE [Concomitant]
  5. IRCAL [Concomitant]
  6. LIPITOR [Concomitant]
  7. ALDACTONE [Concomitant]
  8. AUGMENTIN '125' [Concomitant]
  9. FERROGRAD C [Concomitant]
  10. LASIX [Concomitant]
  11. LOMOTIL [Concomitant]
  12. LOSEC [Concomitant]
  13. MYLANTA [Concomitant]
  14. NORVASC [Concomitant]
  15. OTOCOMB OTIC [Concomitant]
  16. PANAMAX [Concomitant]
  17. PREDNISOLONE [Concomitant]
  18. REFRESH LIQUIGEL [Concomitant]
  19. SERETIDE [Concomitant]
  20. SERETIDE MDI [Concomitant]
  21. SIGMACORT [Concomitant]
  22. STEMETIL [Concomitant]
  23. VENTOLIN [Concomitant]
  24. SPIRIVA [Concomitant]

REACTIONS (4)
  - DYSARTHRIA [None]
  - HEADACHE [None]
  - LETHARGY [None]
  - VOMITING [None]
